FAERS Safety Report 4541870-6 (Version None)
Quarter: 2004Q4

REPORT INFORMATION
  Report Type: 
  Country: None (occurrence: None)
  Receive Date: 20041227
  Receipt Date: 20041208
  Transmission Date: 20050328
  Serious: Yes (Hospitalization)
  Sender: FDA-Public Use
  Company Number: 209955

PATIENT
  Age: 53 Year
  Sex: Male
  Weight: 86.2 kg

DRUGS (8)
  1. RAPTIVA [Suspect]
     Indication: PSORIASIS
     Dosage: 1 ML, 1/WEEK, SUBCUTANEOUS
     Route: 058
     Dates: start: 20040201, end: 20040812
  2. ATENOLOL [Concomitant]
  3. LIPITOR [Concomitant]
  4. GLUCOTROL [Concomitant]
  5. FLOMAX [Concomitant]
  6. WELLBUTRIN [Concomitant]
  7. ZYRTEC [Concomitant]
  8. NASONEX [Concomitant]

REACTIONS (19)
  - ALPHA HAEMOLYTIC STREPTOCOCCAL INFECTION [None]
  - BLOOD GLUCOSE INCREASED [None]
  - BUTTOCK PAIN [None]
  - CELLULITIS [None]
  - CULTURE WOUND POSITIVE [None]
  - GLYCOSYLATED HAEMOGLOBIN INCREASED [None]
  - HAEMATOCRIT DECREASED [None]
  - HAEMOGLOBIN DECREASED [None]
  - IMMUNOSUPPRESSION [None]
  - NASOPHARYNGITIS [None]
  - NECROSIS [None]
  - NECROTISING FASCIITIS [None]
  - NEUTROPHIL PERCENTAGE INCREASED [None]
  - PERINEAL ABSCESS [None]
  - PORPHYROMONAS INFECTION [None]
  - PSORIASIS [None]
  - PYREXIA [None]
  - RASH PAPULAR [None]
  - WHITE BLOOD CELL COUNT INCREASED [None]
